FAERS Safety Report 7265088-1 (Version None)
Quarter: 2011Q1

REPORT INFORMATION
  Report Type: 
  Country: None (occurrence: None)
  Receive Date: 20110131
  Receipt Date: 20110128
  Transmission Date: 20110831
  Serious: Yes (Other)
  Sender: FDA-Public Use
  Company Number: DE-SANOFI-AVENTIS-2011SA005538

PATIENT
  Age: 56 Year
  Sex: Female

DRUGS (5)
  1. CORTISONE [Concomitant]
     Route: 065
  2. MTX [Concomitant]
     Route: 065
  3. GABAPENTIN [Concomitant]
     Route: 065
  4. ALL OTHER THERAPEUTIC PRODUCTS [Concomitant]
     Route: 065
  5. ARAVA [Suspect]
     Route: 048

REACTIONS (3)
  - VIITH NERVE PARALYSIS [None]
  - EYELID FUNCTION DISORDER [None]
  - LYMPHADENOPATHY [None]
